FAERS Safety Report 4424885-8 (Version None)
Quarter: 2004Q3

REPORT INFORMATION
  Report Type: 
  Country: None (occurrence: None)
  Receive Date: 20040719
  Receipt Date: 20040312
  Transmission Date: 20050211
  Serious: Yes (Hospitalization)
  Sender: FDA-Public Use
  Company Number: 194101

PATIENT
  Age: 60 Year
  Sex: Female
  Weight: 58.9676 kg

DRUGS (15)
  1. AVONEX [Suspect]
     Indication: MULTIPLE SCLEROSIS
     Dosage: 30 MCG QW IM
     Route: 030
     Dates: start: 20030130, end: 20031201
  2. AVONEX [Suspect]
     Indication: MULTIPLE SCLEROSIS
     Dosage: 30 MCG QW IM
     Route: 030
     Dates: start: 20031231, end: 20040305
  3. LISINOPRIL [Concomitant]
  4. HYDROCHLOROTHIAZIDE [Concomitant]
  5. EFFEXOR [Concomitant]
  6. LIPITOR [Concomitant]
  7. NEURONTIN [Concomitant]
  8. PREMARIN [Concomitant]
  9. AMBIEN [Concomitant]
  10. ASTELIN [Concomitant]
  11. ACTONEL [Concomitant]
  12. VIOXX [Concomitant]
  13. HUMULIN [Concomitant]
  14. INSULIN NOVOLIN [Concomitant]
  15. VITAMIN B-12 [Concomitant]

REACTIONS (4)
  - BLOOD GLUCOSE INCREASED [None]
  - DENTAL PROSTHESIS PLACEMENT [None]
  - MULTIPLE SCLEROSIS RELAPSE [None]
  - URTICARIA [None]
